FAERS Safety Report 15228344 (Version 1)
Quarter: 2018Q3

REPORT INFORMATION
  Report Type: Spontaneous
  Country: FR (occurrence: FR)
  Receive Date: 20180801
  Receipt Date: 20180801
  Transmission Date: 20181010
  Serious: Yes (Hospitalization, Other)
  Sender: FDA-Public Use
  Company Number: FR-BAYER-2018-138712

PATIENT
  Age: 85 Year
  Sex: Female
  Weight: 40 kg

DRUGS (12)
  1. AFATINIB [Suspect]
     Active Substance: AFATINIB
     Indication: EGFR GENE MUTATION
  2. PIPERACILLIN AND TAZOBACTAM [Suspect]
     Active Substance: PIPERACILLIN SODIUM\TAZOBACTAM SODIUM
     Indication: PUNCTURE SITE ABSCESS
     Dosage: 1 DF, QD
     Route: 042
     Dates: start: 20180320, end: 20180403
  3. CIFLOX [Suspect]
     Active Substance: CIPROFLOXACIN
     Indication: PNEUMONIA
     Dosage: 500 MG, QD
     Route: 048
     Dates: start: 20180321
  4. AFATINIB [Suspect]
     Active Substance: AFATINIB
     Indication: BRONCHIAL CARCINOMA
  5. INNOHEP [Suspect]
     Active Substance: TINZAPARIN SODIUM
     Route: 048
  6. BISOPROLOL [Concomitant]
     Active Substance: BISOPROLOL
     Dosage: 0.5 DF, QD
     Route: 048
  7. AFATINIB [Suspect]
     Active Substance: AFATINIB
     Indication: LUNG NEOPLASM MALIGNANT
     Dosage: 1 DF, QD
     Route: 048
     Dates: start: 20180308, end: 20180320
  8. CIPROFLOXACIN. [Suspect]
     Active Substance: CIPROFLOXACIN
     Indication: PUNCTURE SITE ABSCESS
     Dosage: 1 MG, QD
     Route: 042
     Dates: start: 20180321, end: 20180403
  9. LASILIX [Concomitant]
     Active Substance: FUROSEMIDE
     Dosage: 1 DF, QD
     Route: 048
  10. INNOHEP [Suspect]
     Active Substance: TINZAPARIN SODIUM
     Dosage: 1 DF, QD
     Route: 058
     Dates: start: 201712
  11. TAZOCILLINE [Suspect]
     Active Substance: PIPERACILLIN SODIUM\TAZOBACTAM SODIUM
     Indication: PNEUMONIA
     Dosage: 4 DF, QD
     Route: 042
     Dates: start: 20180321
  12. TAZOCILLINE [Suspect]
     Active Substance: PIPERACILLIN SODIUM\TAZOBACTAM SODIUM
     Indication: PNEUMONIA
     Dosage: 1 DF, UNK
     Route: 042
     Dates: start: 20180321

REACTIONS (5)
  - Erythema multiforme [Recovered/Resolved]
  - Diarrhoea [Recovered/Resolved]
  - Fistula [Recovered/Resolved]
  - Dermatitis bullous [Recovering/Resolving]
  - Pneumonia [Not Recovered/Not Resolved]

NARRATIVE: CASE EVENT DATE: 201803
